FAERS Safety Report 8505348-7 (Version None)
Quarter: 2012Q3

REPORT INFORMATION
  Report Type: 
  Country: None (occurrence: None)
  Receive Date: 20120712
  Receipt Date: 20120706
  Transmission Date: 20120928
  Serious: Yes (Other)
  Sender: FDA-Public Use
  Company Number: PHHY2010GB04645

PATIENT
  Sex: Male

DRUGS (7)
  1. CLOZARIL [Suspect]
     Dosage: 300MG/DAY
     Route: 048
     Dates: start: 20090916
  2. CLOZARIL [Suspect]
     Dosage: 250 MG/DAY
     Route: 048
  3. NEUPOGEN [Concomitant]
     Indication: NEUTROPENIA
  4. ALBUTEROL SULATE [Concomitant]
     Indication: ASTHMA
     Dosage: 2 DF, UNK
     Dates: start: 20090201
  5. HYOSCINE HYDROBROMIDE [Concomitant]
     Indication: SALIVARY HYPERSECRETION
     Dosage: 300 UG/DAY
  6. RANITIDINE [Concomitant]
     Dosage: 300 MG, UNK
     Route: 048
  7. IBUPROFEN [Concomitant]
     Dosage: 400 MG, PRN

REACTIONS (9)
  - H1N1 INFLUENZA [None]
  - WHITE BLOOD CELL COUNT INCREASED [None]
  - SPLENOMEGALY [None]
  - NEUTROPHIL COUNT DECREASED [None]
  - INFLUENZA LIKE ILLNESS [None]
  - PYREXIA [None]
  - OSTEOPOROSIS [None]
  - BONE PAIN [None]
  - NEUTROPHIL COUNT INCREASED [None]
